FAERS Safety Report 8524943-2 (Version None)
Quarter: 2012Q3

REPORT INFORMATION
  Report Type: 
  Country: None (occurrence: None)
  Receive Date: 20120710
  Receipt Date: 20120628
  Transmission Date: 20120928
  Serious: Yes (Hospitalization)
  Sender: FDA-Public Use
  Company Number: VAL_00782_2012

PATIENT
  Age: 32 Year
  Sex: Female

DRUGS (5)
  1. LOSARTAN POTASSIUM [Suspect]
     Indication: HYPERTENSION
     Dosage: 12.5 MG QD, ORAL
     Route: 048
     Dates: start: 20090101, end: 20120301
  2. CALCIUM [Concomitant]
  3. IDEOS UNIDIA (IDEOS UNIDIA (CALCIUM CARBONATE, CHOLECALCIFEROL)) (NOT [Suspect]
     Indication: RENAL FAILURE CHRONIC
     Dosage: 1 DF QD ORAL
     Route: 048
     Dates: start: 20120101, end: 20120301
  4. VITAMIN D [Concomitant]
  5. ROCALTROL [Suspect]
     Indication: RENAL FAILURE CHRONIC
     Dosage: 1 UG QD ORAL
     Route: 048
     Dates: start: 20111001, end: 20120301

REACTIONS (4)
  - RENAL FAILURE ACUTE [None]
  - DRUG INTERACTION [None]
  - HYPERCALCAEMIA [None]
  - ANGIOLIPOMA [None]
